FAERS Safety Report 5130914-9 (Version None)
Quarter: 2006Q3

REPORT INFORMATION
  Report Type: 
  Country: None (occurrence: None)
  Receive Date: 20060829
  Receipt Date: 20060523
  Transmission Date: 20061208
  Serious: No
  Sender: FDA-Public Use
  Company Number: PHEH2006US04269

PATIENT
  Age: 73 Year
  Sex: Male
  Weight: 66.7 kg

DRUGS (8)
  1. EXJADE [Suspect]
     Indication: BLOOD IRON INCREASED
     Dosage: 1000 MG , QD, ORAL
     Route: 048
     Dates: start: 20060310
  2. LOPRESSOR [Concomitant]
  3. ASPIRIN [Concomitant]
  4. PLAVIX        (CLOPIDOGEL SULFATE) [Concomitant]
  5. PRILOSEC [Concomitant]
  6. SYNTHROID [Concomitant]
  7. LASIX [Concomitant]
  8. NITFIOGLYCERIN TRANSDERMAL SYSTEM                    (GLYCERYL TRINITR [Concomitant]

REACTIONS (4)
  - AGEUSIA [None]
  - DIARRHOEA [None]
  - DIZZINESS [None]
  - FLATULENCE [None]
